FAERS Safety Report 12423286 (Version 1)
Quarter: 2016Q2

REPORT INFORMATION
  Report Type: Spontaneous
  Country: US (occurrence: None)
  Receive Date: 20160531
  Receipt Date: 20160531
  Transmission Date: 20160815
  Serious: Yes (Hospitalization, Other)
  Sender: FDA-Public Use
  Company Number: None

PATIENT
  Age: 29 Year
  Sex: Female
  Weight: 77.11 kg

DRUGS (1)
  1. IUD NOS [Suspect]
     Active Substance: COPPER OR LEVONORGESTREL
     Dates: start: 20130603, end: 20160303

REACTIONS (2)
  - Complication associated with device [None]
  - Pregnancy with contraceptive device [None]

NARRATIVE: CASE EVENT DATE: 20160201
